FAERS Safety Report 13420037 (Version 1)
Quarter: 2017Q2

REPORT INFORMATION
  Report Type: Spontaneous
  Country: US (occurrence: US)
  Receive Date: 20170407
  Receipt Date: 20170407
  Transmission Date: 20170830
  Serious: No
  Sender: FDA-Public Use
  Company Number: US-JNJFOC-20170308902

PATIENT
  Age: 53 Year
  Sex: Female

DRUGS (1)
  1. STELARA [Suspect]
     Active Substance: USTEKINUMAB
     Indication: PRODUCT USED FOR UNKNOWN INDICATION
     Route: 058
     Dates: start: 2016

REACTIONS (7)
  - Chest discomfort [Unknown]
  - Vision blurred [Unknown]
  - Oropharyngeal discomfort [Unknown]
  - Dizziness [Unknown]
  - Headache [Unknown]
  - Urticaria [Unknown]
  - Heart rate increased [Unknown]
